FAERS Safety Report 20807051 (Version 2)
Quarter: 2022Q2

REPORT INFORMATION
  Report Type: Report from Study
  Country: BR (occurrence: BR)
  Receive Date: 20220510
  Receipt Date: 20220609
  Transmission Date: 20220721
  Serious: Yes (Disabling)
  Sender: FDA-Public Use
  Company Number: BR-ABBVIE-22K-020-4292485-00

PATIENT
  Age: 51 Year
  Sex: Female
  Weight: 57 kg

DRUGS (1)
  1. SKYRIZI [Suspect]
     Active Substance: RISANKIZUMAB-RZAA
     Indication: Psoriasis
     Route: 058
     Dates: start: 20210826

REACTIONS (7)
  - Visual impairment [Not Recovered/Not Resolved]
  - Condition aggravated [Unknown]
  - Retinal disorder [Not Recovered/Not Resolved]
  - Skin discolouration [Not Recovered/Not Resolved]
  - Eye ulcer [Not Recovered/Not Resolved]
  - Visual impairment [Not Recovered/Not Resolved]
  - Cystoid macular oedema [Not Recovered/Not Resolved]

NARRATIVE: CASE EVENT DATE: 20210801
